FAERS Safety Report 7707534-2 (Version None)
Quarter: 2011Q3

REPORT INFORMATION
  Report Type: 
  Country: None (occurrence: None)
  Receive Date: 20110818
  Receipt Date: 20110812
  Transmission Date: 20111222
  Serious: Yes (Other)
  Sender: FDA-Public Use
  Company Number: DSA_47150_2011

PATIENT

DRUGS (12)
  1. XENAZINE [Suspect]
     Indication: CHOREA
     Dosage: (12.5 MG BID ORAL) ; (12.5 MG QD ORAL)
     Route: 048
     Dates: start: 20100701
  2. XENAZINE [Suspect]
     Indication: CHOREA
     Dosage: (12.5 MG BID ORAL) ; (12.5 MG QD ORAL)
     Route: 048
     Dates: start: 20110301
  3. LEVOTHYROXINE SODIUM [Concomitant]
  4. ALBUTEROL [Concomitant]
  5. CELEXA [Concomitant]
  6. WARFARIN SODIUM [Concomitant]
  7. CELLCEPT [Concomitant]
  8. COREG [Concomitant]
  9. PANTOPRAZOLE [Concomitant]
  10. HYDRALAZINE HCL [Concomitant]
  11. COLACE [Concomitant]
  12. CALCIUM CARBONATE [Concomitant]

REACTIONS (10)
  - DEPRESSION [None]
  - INSOMNIA [None]
  - DIZZINESS [None]
  - CHOREA [None]
  - SOMNOLENCE [None]
  - FALL [None]
  - FATIGUE [None]
  - DIPLOPIA [None]
  - ACTIVITIES OF DAILY LIVING IMPAIRED [None]
  - CONDITION AGGRAVATED [None]
